FAERS Safety Report 9283855 (Version 10)
Quarter: 2014Q2

REPORT INFORMATION
  Report Type: Report from Study
  Country: US (occurrence: US)
  Receive Date: 20130510
  Receipt Date: 20140508
  Transmission Date: 20141212
  Serious: Yes (Death, Life-Threatening, Hospitalization)
  Sender: FDA-Public Use
  Company Number: PHHO2013US006147

PATIENT
  Age: 73 Year
  Sex: Male
  Weight: 107.3 kg

DRUGS (42)
  1. ACZ885 [Suspect]
     Indication: CARDIOVASCULAR EVENT PROPHYLAXIS
     Dosage: 50 MG, UNK
     Route: 058
     Dates: start: 20120125, end: 20130206
  2. ALLOPURINOL [Concomitant]
     Indication: GOUT
     Dosage: 100 MG, QD
     Route: 048
  3. ASPIRIN [Concomitant]
     Indication: MYOCARDIAL INFARCTION
     Dosage: 81 MG, QD
     Route: 048
     Dates: start: 20040131, end: 20130705
  4. INSULIN [Concomitant]
     Indication: DIABETES MELLITUS
     Dosage: 70/30, 38 IU QD AND 58 IU QD
     Dates: start: 200401, end: 20120416
  5. INSULIN [Concomitant]
     Dosage: 70/30, 75 U BID AND 100 U
     Route: 058
     Dates: start: 20120417
  6. VITAMIN B12 [Concomitant]
     Indication: VITAMIN B12 DEFICIENCY
     Dosage: 2000 MG, QD
     Route: 048
     Dates: start: 200301, end: 20130705
  7. CARBIDOPA AND LEVODOPA [Concomitant]
     Indication: PARKINSON^S DISEASE
     Dosage: 100 MG, TID
     Route: 048
     Dates: end: 20120305
  8. ACETAMINOPHEN W/CODEINE [Concomitant]
     Indication: INTERMITTENT CLAUDICATION
     Dosage: 1 TABLET, BID
     Route: 048
  9. CYCLOBENZAPRINE HYDROCHLORIDE [Concomitant]
     Indication: BACK PAIN
     Dosage: 10 MG, BID
     Route: 048
     Dates: end: 20130705
  10. ENALAPRIL [Concomitant]
     Indication: MYOCARDIAL INFARCTION
     Dosage: 20 MG, QD
     Route: 048
     Dates: start: 200401
  11. ENALAPRIL [Concomitant]
     Indication: HYPERTENSION
  12. FINASTERIDE [Concomitant]
     Indication: BENIGN PROSTATIC HYPERPLASIA
     Dosage: 5 MG, BID
     Route: 048
  13. LASIX [Concomitant]
     Indication: HYPERTENSION
     Dosage: 40 MG, QD
     Route: 048
  14. LEVOTHYROXINE [Concomitant]
     Indication: HYPOTHYROIDISM
     Dosage: 0.05 MG, QD
     Route: 048
     Dates: start: 201103
  15. METOPROLOL TARTRATE [Concomitant]
     Indication: MYOCARDIAL INFARCTION
     Dosage: 50 MG, BID
     Route: 048
     Dates: start: 200401
  16. MELATONIN [Concomitant]
     Indication: INSOMNIA
     Dosage: 10 MG, BID
     Route: 048
  17. OMEPRAZOLE [Concomitant]
     Indication: GASTROOESOPHAGEAL REFLUX DISEASE
     Dosage: 20 MG, QD
     Route: 048
     Dates: end: 20120305
  18. PROTONIX [Concomitant]
     Indication: GASTROOESOPHAGEAL REFLUX DISEASE
     Dosage: 40 MG, UNK
     Route: 048
     Dates: start: 20120305
  19. PRASUGREL HYDROCHLORIDE [Concomitant]
     Indication: PERCUTANEOUS CORONARY INTERVENTION
     Dosage: 10 MG, QD
     Route: 048
     Dates: start: 201109, end: 20130705
  20. SALSALATE [Concomitant]
     Indication: ARTHRALGIA
     Dosage: 750 MG, TID
     Route: 048
     Dates: start: 200402, end: 20130705
  21. SIMVASTATIN [Concomitant]
     Indication: HYPERLIPIDAEMIA
     Dosage: 40 MG, QD
     Route: 048
     Dates: end: 20130705
  22. SIMVASTATIN [Concomitant]
     Indication: BLOOD CHOLESTEROL
  23. TERAZOSIN HYDROCHLORIDE [Concomitant]
     Indication: HYPERTENSION
     Dosage: 5 MG, UNK
     Route: 048
  24. CLONAZEPAM [Concomitant]
     Indication: INSOMNIA
     Dosage: 0.5 MG, QD
     Route: 048
     Dates: start: 201203
  25. CLONAZEPAM [Concomitant]
     Dosage: 6.5 MG, QD
     Dates: start: 201208
  26. ZITHROMAX [Concomitant]
     Indication: UPPER RESPIRATORY TRACT INFECTION
     Dosage: 500 MG, PRN
     Route: 048
  27. TESSALON PERLE [Concomitant]
     Indication: COUGH
     Dosage: 100 MG, BID
     Route: 048
     Dates: start: 20120721, end: 20120815
  28. ALBUTEROL [Concomitant]
     Indication: BRONCHITIS CHRONIC
     Dosage: 90 UG, UNK
     Route: 055
     Dates: start: 20130206, end: 20130610
  29. CLARITHROMYCIN [Concomitant]
     Indication: BRONCHITIS CHRONIC
     Dosage: 500 MG, BID
     Route: 048
     Dates: start: 201208, end: 20120815
  30. BENZONATATE [Concomitant]
     Indication: COUGH
     Dosage: 100 MG, UNK
     Dates: start: 20130705
  31. CARBOXYMETHYLCELLULOSE SODIUM [Concomitant]
     Indication: GLAUCOMA
     Dosage: UNK
     Dates: start: 20130705
  32. CODEINE W/GUAIFENESIN [Concomitant]
     Indication: COUGH
     Dosage: 100/10MG
     Dates: start: 20130705, end: 20130815
  33. DORZOLAMIDE TIMOLOL [Concomitant]
     Indication: GLAUCOMA
     Dosage: 2 DF (DROPS), BID
     Route: 061
  34. IPRATROPIUM [Concomitant]
     Indication: COUGH
     Dosage: 0.02 %, UNK
     Dates: start: 20130705
  35. LORTAB [Concomitant]
     Indication: PAIN
     Dosage: 5 MG, UNK
     Dates: start: 20130705
  36. AMOXICILLIN [Concomitant]
     Indication: PNEUMONIA
     Dosage: 875 MG, UNK
     Dates: start: 20130705, end: 20130705
  37. DOCUSATE SODIUM [Concomitant]
     Indication: CONSTIPATION
     Dosage: 250 MG, UNK
     Dates: start: 20130705
  38. LORAZEPAM [Concomitant]
     Indication: INSOMNIA
     Dosage: 1 MCP
     Dates: start: 20130705
  39. NYSTATIN [Concomitant]
     Indication: PNEUMONIA
     Dosage: 50000 IU, UNK
     Dates: start: 20130705, end: 20130815
  40. TRAZODONE [Concomitant]
     Indication: INSOMNIA
     Dosage: 50 MG, UNK
     Dates: start: 20130705
  41. TIMOLOL [Concomitant]
     Indication: GLAUCOMA
     Dosage: 0.5 %, UNK
     Dates: start: 20130705
  42. CHEMOTHERAPEUTICS NOS [Concomitant]

REACTIONS (4)
  - Lung neoplasm malignant [Fatal]
  - Pneumonia [Recovered/Resolved]
  - Sepsis [Recovered/Resolved]
  - Mental status changes [Recovered/Resolved]
